FAERS Safety Report 5115427-2 (Version None)
Quarter: 2006Q3

REPORT INFORMATION
  Report Type: 
  Country: None (occurrence: None)
  Receive Date: 20060922
  Receipt Date: 20060905
  Transmission Date: 20061208
  Serious: Yes (Death, Other)
  Sender: FDA-Public Use
  Company Number: 167-C5013-06070017

PATIENT
  Age: 61 Year
  Sex: Male
  Weight: 79.2 kg

DRUGS (4)
  1. REVLIMID [Suspect]
     Indication: MULTIPLE MYELOMA
     Dosage: 25 MG, ORAL
     Route: 048
     Dates: start: 20051207, end: 20051214
  2. DEXAMETHASONE TAB [Concomitant]
  3. ACETAMINOPHEN [Concomitant]
  4. FLOXACILLIN SODIUM [Concomitant]

REACTIONS (4)
  - ALANINE AMINOTRANSFERASE INCREASED [None]
  - CONDITION AGGRAVATED [None]
  - DISEASE PROGRESSION [None]
  - HEPATOMEGALY [None]
